FAERS Safety Report 9885624 (Version 1)
Quarter: 2014Q1

REPORT INFORMATION
  Report Type: Spontaneous
  Country: JP (occurrence: IE)
  Receive Date: 20140210
  Receipt Date: 20140210
  Transmission Date: 20141002
  Serious: Yes (Other)
  Sender: FDA-Public Use
  Company Number: JP-WATSON-2014-01698

PATIENT
  Age: 71 Year
  Sex: Male

DRUGS (6)
  1. RAPAFLO (WATSON LABORATORIES) [Suspect]
     Indication: PROSTATE CANCER
     Dosage: 1 DF, DAILY
     Route: 048
     Dates: start: 20131223, end: 20140106
  2. CAPRIN [Concomitant]
     Indication: CEREBROVASCULAR ACCIDENT
     Dosage: 75 MG, DAILY
     Route: 065
     Dates: start: 20110323, end: 20140109
  3. ATORVASTATIN [Concomitant]
     Indication: HYPERCHOLESTEROLAEMIA
     Dosage: 40 MG, DAILY
     Route: 065
     Dates: start: 20110323, end: 20140109
  4. ASPIRIN\DIPYRIDAMOLE [Concomitant]
     Indication: CEREBROVASCULAR ACCIDENT
     Dosage: UNK, UNKNOWN
     Route: 065
     Dates: start: 20110323, end: 20140109
  5. PERINDOPRIL [Concomitant]
     Indication: CEREBROVASCULAR ACCIDENT
     Dosage: 2.5, DAILY
     Route: 065
     Dates: start: 20111223, end: 20140109
  6. LEUPRORELIN [Concomitant]
     Indication: PROSTATE CANCER
     Dosage: 4 DF, YEARLY
     Route: 065
     Dates: start: 20130703, end: 20140109

REACTIONS (2)
  - Urticaria [Recovered/Resolved]
  - Lip oedema [Recovered/Resolved]
